FAERS Safety Report 25907560 (Version 1)
Quarter: 2025Q4

REPORT INFORMATION
  Report Type: Spontaneous
  Country: EU (occurrence: EU)
  Receive Date: 20251010
  Receipt Date: 20251010
  Transmission Date: 20260118
  Serious: Yes (Hospitalization, Other)
  Sender: RANBAXY
  Company Number: EU-SUN PHARMACEUTICAL INDUSTRIES LTD-2025RR-530195

PATIENT
  Age: 34 Year
  Sex: Male

DRUGS (32)
  1. TILDRAKIZUMAB [Suspect]
     Active Substance: TILDRAKIZUMAB
     Indication: Product used for unknown indication
     Dosage: 3.333 MILLIGRAM, 1DOSE/MONTH
     Route: 048
     Dates: start: 20220623, end: 20220723
  2. TILDRAKIZUMAB [Suspect]
     Active Substance: TILDRAKIZUMAB
     Dosage: 100 MILLIGRAM
     Route: 048
     Dates: start: 20220723
  3. CALCIPOTRIENE [Concomitant]
     Active Substance: CALCIPOTRIENE
     Indication: Psoriasis
     Dosage: 50.0 MICROGRAM, DAILY
     Route: 061
     Dates: start: 20181220
  4. ACETAMINOPHEN\CODEINE PHOSPHATE [Concomitant]
     Active Substance: ACETAMINOPHEN\CODEINE PHOSPHATE
     Indication: Pharyngitis
     Dosage: 30.30 MILLIGRAM
     Dates: start: 20240408, end: 20240413
  5. DEXTROMETHORPHAN [Concomitant]
     Active Substance: DEXTROMETHORPHAN
     Indication: Nasopharyngitis
     Dosage: 2 MILLIGRAM
     Dates: start: 20240720, end: 20240726
  6. BETAMETHASONE [Concomitant]
     Active Substance: BETAMETHASONE
     Indication: Psoriasis
     Dosage: 500 MICROGRAM, DAILY
     Route: 061
  7. DEXKETOPROFEN [Concomitant]
     Active Substance: DEXKETOPROFEN
     Indication: Psoriasis
     Dosage: 500 MICROGRAM, DAILY
     Route: 048
     Dates: start: 20200421
  8. ACETAMINOPHEN [Concomitant]
     Active Substance: ACETAMINOPHEN
     Indication: Nasopharyngitis
     Dosage: 650 MILLIGRAM, DAILY
     Route: 048
  9. ACETAMINOPHEN [Concomitant]
     Active Substance: ACETAMINOPHEN
     Indication: Purulence
     Dosage: 1 MILLIGRAM, DAILY
     Route: 048
  10. ACETAMINOPHEN [Concomitant]
     Active Substance: ACETAMINOPHEN
     Indication: Pharyngitis
     Dosage: 650 MILLIGRAM, DAILY
     Route: 048
     Dates: start: 20240414, end: 20240415
  11. ACETAMINOPHEN [Concomitant]
     Active Substance: ACETAMINOPHEN
     Indication: Tonsillitis
  12. CODEINE [Concomitant]
     Active Substance: CODEINE
     Indication: Nasopharyngitis
     Dosage: 10 MILLIGRAM, DAILY
     Route: 048
     Dates: start: 20231214, end: 20231226
  13. CODEINE [Concomitant]
     Active Substance: CODEINE
     Indication: Pharyngitis
     Dosage: 10 MILLIGRAM
     Route: 048
     Dates: start: 20240408, end: 20240415
  14. ASCORBIC ACID [Concomitant]
     Active Substance: ASCORBIC ACID
     Indication: Nasopharyngitis
     Dosage: 500 MILLIGRAM, DAILY
     Route: 048
     Dates: start: 20231214, end: 20231226
  15. ASCORBIC ACID [Concomitant]
     Active Substance: ASCORBIC ACID
     Indication: Pharyngitis
     Dosage: 500 MILLIGRAM, DAILY
     Route: 048
     Dates: start: 20240408, end: 20240413
  16. ASCORBIC ACID [Concomitant]
     Active Substance: ASCORBIC ACID
     Dosage: 500 MILLIGRAM, DAILY
     Route: 048
     Dates: start: 20240414, end: 20240415
  17. DEFLAZACORT [Concomitant]
     Active Substance: DEFLAZACORT
     Indication: Bronchitis
     Dosage: 30 MILLIGRAM, DAILY
     Route: 048
     Dates: start: 20231216, end: 20231226
  18. ALBUTEROL [Concomitant]
     Active Substance: ALBUTEROL
     Indication: Bronchitis
     Dosage: 100 MICROGRAM
     Route: 065
     Dates: start: 20231216, end: 20231226
  19. AMOXICILLIN [Concomitant]
     Active Substance: AMOXICILLIN
     Indication: Bronchitis
     Dosage: 600 MILLIGRAM, DAILY
     Route: 048
     Dates: start: 20231218, end: 20231225
  20. BISOPROLOL [Concomitant]
     Active Substance: BISOPROLOL
     Indication: Atrial fibrillation
     Dosage: 2.5 MILLIGRAM, DAILY
     Route: 048
     Dates: start: 20220712, end: 20230329
  21. BISOPROLOL [Concomitant]
     Active Substance: BISOPROLOL
     Dosage: 2.5 MILLIGRAM, DAILY
     Route: 048
     Dates: start: 20230330
  22. ACETYLCYSTEINE [Concomitant]
     Active Substance: ACETYLCYSTEINE
     Indication: Bronchitis
     Dosage: 600 MILLIGRAM, DAILY
     Route: 048
     Dates: start: 20231218, end: 20231225
  23. CLOPERASTINE [Concomitant]
     Active Substance: CLOPERASTINE
     Indication: Bronchitis
     Dosage: 10 MILLIGRAM, DAILY
     Route: 048
     Dates: start: 20231226, end: 20231231
  24. RETINOL [Concomitant]
     Active Substance: RETINOL
     Indication: Bronchitis
     Dosage: 50.00 MILESIU
     Route: 048
     Dates: start: 20231226, end: 20240104
  25. IBUPROFEN [Concomitant]
     Active Substance: IBUPROFEN
     Indication: Tonsillitis
     Dosage: UNK
     Route: 048
     Dates: start: 20240207, end: 20240220
  26. IBUPROFEN [Concomitant]
     Active Substance: IBUPROFEN
     Indication: Purulence
  27. AMOXICILLIN [Concomitant]
     Active Substance: AMOXICILLIN
     Indication: Purulence
     Dosage: 875 MILLIGRAM
     Route: 048
     Dates: start: 20240207, end: 20240217
  28. AMOXICILLIN [Concomitant]
     Active Substance: AMOXICILLIN
     Indication: Tonsillitis
  29. CLAVULANIC ACID [Concomitant]
     Active Substance: CLAVULANIC ACID
     Indication: Purulence
     Dosage: UNK
     Route: 048
     Dates: start: 20240207, end: 20240217
  30. CLAVULANIC ACID [Concomitant]
     Active Substance: CLAVULANIC ACID
     Indication: Tonsillitis
  31. MEPIFYLLINE [Suspect]
     Active Substance: MEPIFYLLINE
     Indication: Pharyngitis
     Dosage: 10 MILLIGRAM, DAILY
     Route: 048
     Dates: start: 20240408, end: 20240413
  32. MEPIFYLLINE [Suspect]
     Active Substance: MEPIFYLLINE
     Dosage: 25 MILLIGRAM, DAILY
     Route: 048
     Dates: start: 20240414, end: 20240415

REACTIONS (3)
  - Pulmonary hilum mass [Recovered/Resolved]
  - Atrial fibrillation [Recovered/Resolved]
  - Lymphadenopathy mediastinal [Recovered/Resolved]

NARRATIVE: CASE EVENT DATE: 20220630
